FAERS Safety Report 12470048 (Version 1)
Quarter: 2016Q2

REPORT INFORMATION
  Report Type: Spontaneous
  Country: VE (occurrence: VE)
  Receive Date: 20160616
  Receipt Date: 20160616
  Transmission Date: 20160815
  Serious: Yes (Other)
  Sender: FDA-Public Use
  Company Number: PHHY2016VE080398

PATIENT
  Sex: Female

DRUGS (2)
  1. TEGRETOL [Suspect]
     Active Substance: CARBAMAZEPINE
     Indication: PARKINSON^S DISEASE
     Dosage: 200 MG, QD
     Route: 048
  2. VALPRON [Concomitant]
     Indication: SEIZURE
     Dosage: 300 MG, QD
     Route: 065

REACTIONS (3)
  - Malaise [Unknown]
  - Seizure [Unknown]
  - Product use issue [Unknown]
